FAERS Safety Report 20732792 (Version 1)
Quarter: 2022Q2

REPORT INFORMATION
  Report Type: Spontaneous
  Country: DE (occurrence: None)
  Receive Date: 20220420
  Receipt Date: 20220420
  Transmission Date: 20220721
  Serious: No
  Sender: FDA-Public Use
  Company Number: DE-ROCHE-3070036

PATIENT
  Age: 29 Year
  Sex: Female

DRUGS (1)
  1. OCREVUS [Suspect]
     Active Substance: OCRELIZUMAB
     Indication: Multiple sclerosis
     Route: 042
     Dates: start: 20211006, end: 20211020

REACTIONS (4)
  - Sinusitis [Unknown]
  - Fungal infection [Unknown]
  - COVID-19 [Recovering/Resolving]
  - Aphthous ulcer [Unknown]

NARRATIVE: CASE EVENT DATE: 20211201
